FAERS Safety Report 7008806-X (Version None)
Quarter: 2010Q3

REPORT INFORMATION
  Report Type: 
  Country: None (occurrence: None)
  Receive Date: 20100922
  Receipt Date: 20100812
  Transmission Date: 20110219
  Serious: Yes (Other)
  Sender: FDA-Public Use
  Company Number: US-BAXTER-2010BH003444

PATIENT
  Age: 66 Year
  Sex: Male
  Weight: 86 kg

DRUGS (21)
  1. HEPARIN SODIUM INJECTION [Suspect]
     Indication: COLON POLYPECTOMY
     Route: 058
     Dates: start: 20080322, end: 20080414
  2. HEPARIN SODIUM INJECTION [Suspect]
     Route: 058
     Dates: start: 20080428, end: 20080502
  3. ENALAPRIL MALEATE [Concomitant]
     Indication: PRODUCT USED FOR UNKNOWN INDICATION
     Route: 065
  4. FELODIPINE [Concomitant]
     Indication: PRODUCT USED FOR UNKNOWN INDICATION
     Route: 065
  5. FENTANYL CITRATE [Concomitant]
     Indication: PRODUCT USED FOR UNKNOWN INDICATION
     Route: 008
  6. METOPROLOL TARTRATE [Concomitant]
     Indication: PRODUCT USED FOR UNKNOWN INDICATION
     Route: 042
  7. MORPHINE [Concomitant]
     Indication: PAIN
     Route: 042
  8. ONDANSETRON [Concomitant]
     Indication: NAUSEA
     Route: 065
  9. RANITIDINE [Concomitant]
     Indication: PRODUCT USED FOR UNKNOWN INDICATION
     Route: 065
  10. ASPIRIN [Concomitant]
     Indication: PRODUCT USED FOR UNKNOWN INDICATION
     Route: 065
  11. HYDRALAZINE HCL [Concomitant]
     Indication: BLOOD PRESSURE INCREASED
     Route: 048
  12. BISACODYL [Concomitant]
     Indication: PRODUCT USED FOR UNKNOWN INDICATION
     Route: 065
  13. ACETAMINOPHEN AND OXYCODONE HCL [Concomitant]
     Indication: PRODUCT USED FOR UNKNOWN INDICATION
     Route: 065
  14. SODIUM CHLORIDE [Concomitant]
     Indication: PRODUCT USED FOR UNKNOWN INDICATION
     Route: 065
  15. METOCLOPRAMIDE [Concomitant]
     Indication: NAUSEA
     Route: 042
     Dates: start: 20100324
  16. CITALOPRAM HYDROBROMIDE [Concomitant]
     Indication: PRODUCT USED FOR UNKNOWN INDICATION
     Route: 048
  17. LACTINEX [Concomitant]
     Indication: PRODUCT USED FOR UNKNOWN INDICATION
     Route: 048
  18. LORAZEPAM [Concomitant]
     Indication: ANXIETY
     Route: 048
  19. OMEPRAZOLE [Concomitant]
     Indication: PRODUCT USED FOR UNKNOWN INDICATION
     Route: 048
  20. PROMETHAZINE [Concomitant]
     Indication: NAUSEA
     Route: 048
  21. MOXIFLOXACIN HYDROCHLORIDE [Concomitant]
     Indication: PRODUCT USED FOR UNKNOWN INDICATION
     Route: 042

REACTIONS (13)
  - ABDOMINAL PAIN [None]
  - ANXIETY [None]
  - APHAGIA [None]
  - ASTHENIA [None]
  - DIARRHOEA [None]
  - ERYTHEMA [None]
  - HEADACHE [None]
  - HYPERHIDROSIS [None]
  - NAUSEA [None]
  - PHARYNGEAL OEDEMA [None]
  - PYREXIA [None]
  - RASH [None]
  - VOMITING [None]
